FAERS Safety Report 23425066 (Version 1)
Quarter: 2024Q1

REPORT INFORMATION
  Report Type: Spontaneous
  Country: US (occurrence: US)
  Receive Date: 20240121
  Receipt Date: 20240121
  Transmission Date: 20240410
  Serious: No
  Sender: FDA-Public Use
  Company Number: US-BAUSCHBL-2024BNL000438

PATIENT
  Age: 67 Year
  Sex: Female
  Weight: 67 kg

DRUGS (4)
  1. FLURBIPROFEN SODIUM [Suspect]
     Active Substance: FLURBIPROFEN SODIUM
     Indication: Dry eye
     Route: 047
     Dates: start: 20231227
  2. FLURBIPROFEN SODIUM [Suspect]
     Active Substance: FLURBIPROFEN SODIUM
     Indication: Eye irritation
  3. FLURBIPROFEN SODIUM [Suspect]
     Active Substance: FLURBIPROFEN SODIUM
     Indication: Product use in unapproved indication
  4. ATORVASTATIN [Concomitant]
     Active Substance: ATORVASTATIN
     Indication: Product used for unknown indication
     Route: 065

REACTIONS (4)
  - Pain [Recovered/Resolved]
  - Screaming [Recovered/Resolved]
  - Tremor [Recovered/Resolved]
  - Product use in unapproved indication [Unknown]

NARRATIVE: CASE EVENT DATE: 20231227
